FAERS Safety Report 10150714 (Version 1)
Quarter: 2014Q2

REPORT INFORMATION
  Report Type: Spontaneous
  Country: US (occurrence: US)
  Receive Date: 20140502
  Receipt Date: 20140502
  Transmission Date: 20141212
  Serious: Yes (Other)
  Sender: FDA-Public Use
  Company Number: US-BRISTOL-MYERS SQUIBB COMPANY-20680104

PATIENT
  Age: 84 Year
  Sex: Male

DRUGS (1)
  1. SPRYCEL (CML) TABS [Suspect]
     Indication: CHRONIC MYELOID LEUKAEMIA
     Dosage: REDUCED TO 80MG
     Route: 048

REACTIONS (5)
  - Transfusion [Unknown]
  - White blood cell count decreased [Unknown]
  - Cough [Unknown]
  - Fatigue [Unknown]
  - Nausea [Recovered/Resolved]
